FAERS Safety Report 11852797 (Version 1)
Quarter: 2015Q4

REPORT INFORMATION
  Report Type: Spontaneous
  Country: US (occurrence: US)
  Receive Date: 20151218
  Receipt Date: 20151218
  Transmission Date: 20160305
  Serious: No
  Sender: FDA-Public Use
  Company Number: US-GLAXOSMITHKLINE-US2015177239

PATIENT
  Age: 59 Year
  Sex: Male

DRUGS (9)
  1. LAMICTAL XR [Suspect]
     Active Substance: LAMOTRIGINE
     Indication: BIPOLAR DISORDER
     Dosage: 200 MG, QD
     Route: 048
     Dates: start: 201510
  2. LAMICTAL XR [Suspect]
     Active Substance: LAMOTRIGINE
     Indication: MAJOR DEPRESSION
  3. FLUDROCORTISONE ACETATE. [Concomitant]
     Active Substance: FLUDROCORTISONE ACETATE
  4. S-ADENOSYLMETHIONINE SULFATE P-TOLUENESULFONATE [Concomitant]
     Active Substance: ADEMETIONINE SULFATE TOSILATE
  5. LORAZEPAM. [Concomitant]
     Active Substance: LORAZEPAM
  6. DOGMATIL [Concomitant]
     Active Substance: SULPIRIDE
  7. MAGNESIUM [Concomitant]
     Active Substance: MAGNESIUM
  8. CLOZAPINE. [Concomitant]
     Active Substance: CLOZAPINE
  9. AMINO ACIDS [Concomitant]
     Active Substance: AMINO ACIDS

REACTIONS (3)
  - Hypotension [Recovering/Resolving]
  - Syncope [Recovering/Resolving]
  - Wrong technique in product usage process [Not Recovered/Not Resolved]

NARRATIVE: CASE EVENT DATE: 201511
